FAERS Safety Report 24815988 (Version 1)
Quarter: 2025Q1

REPORT INFORMATION
  Report Type: Spontaneous
  Country: SE (occurrence: SE)
  Receive Date: 20250107
  Receipt Date: 20250107
  Transmission Date: 20250408
  Serious: Yes (Disabling)
  Sender: REGENERON
  Company Number: None

PATIENT
  Age: 82 Year
  Sex: Female

DRUGS (1)
  1. EYLEA [Suspect]
     Active Substance: AFLIBERCEPT
     Indication: Neovascular age-related macular degeneration
     Route: 031
     Dates: start: 202112, end: 20240222

REACTIONS (2)
  - Blindness unilateral [Recovered/Resolved with Sequelae]
  - Bacterial endophthalmitis [Recovered/Resolved with Sequelae]

NARRATIVE: CASE EVENT DATE: 20240224
